FAERS Safety Report 5375938-1 (Version None)
Quarter: 2007Q2

REPORT INFORMATION
  Report Type: 
  Country: None (occurrence: None)
  Receive Date: 20070627
  Receipt Date: 20070627
  Transmission Date: 20071010
  Serious: Yes (Life-Threatening, Hospitalization)
  Sender: FDA-Public Use
  Company Number: None

PATIENT
  Age: 65 Year
  Sex: Male
  Weight: 87.2 kg

DRUGS (17)
  1. PLAVIX [Suspect]
     Indication: PRESYNCOPE
     Dosage: 75MG DAILY PO
     Route: 048
     Dates: start: 20070529, end: 20070531
  2. PLAVIX [Suspect]
     Indication: TRANSIENT ISCHAEMIC ATTACK
     Dosage: 75MG DAILY PO
     Route: 048
     Dates: start: 20070529, end: 20070531
  3. ASPIRIN [Concomitant]
  4. CHANTIX [Concomitant]
  5. ZETIA [Concomitant]
  6. ZOCOR [Concomitant]
  7. TOPROL-XL [Concomitant]
  8. SYNTHROID [Concomitant]
  9. AMBIEN [Concomitant]
  10. CLARITIN [Concomitant]
  11. AVODART [Concomitant]
  12. NICOBID [Concomitant]
  13. ZOLOFT [Concomitant]
  14. FLOMAX [Concomitant]
  15. PROTONIX [Concomitant]
  16. AMOXICILLIN [Concomitant]
  17. NITROGLYCERIN [Concomitant]

REACTIONS (5)
  - ANAEMIA [None]
  - HAEMOLYTIC URAEMIC SYNDROME [None]
  - RENAL IMPAIRMENT [None]
  - THROMBOCYTOPENIA [None]
  - THROMBOTIC THROMBOCYTOPENIC PURPURA [None]
